FAERS Safety Report 16161081 (Version 2)
Quarter: 2019Q2

REPORT INFORMATION
  Report Type: Spontaneous
  Country: GB (occurrence: GB)
  Receive Date: 20190405
  Receipt Date: 20190512
  Transmission Date: 20190711
  Serious: Yes (Other)
  Sender: FDA-Public Use
  Company Number: GB-CELLTRION INC.-2019GB020127

PATIENT

DRUGS (8)
  1. RITUXIMAB (UNKNOWN) [Suspect]
     Active Substance: RITUXIMAB
     Indication: B-CELL PROLYMPHOCYTIC LEUKAEMIA
     Dosage: UNK, TWO WEEKLY CYCLE (CYCLE 12)
  2. RITUXIMAB (UNKNOWN) [Suspect]
     Active Substance: RITUXIMAB
     Dosage: UNK, FOUR WEEKLY CYCLE (CYCLE 36) DOSES
  3. IDELALISIB [Suspect]
     Active Substance: IDELALISIB
     Dosage: 100 MG DAILY ON ALTERNATE DAYS
     Route: 048
  4. IDELALISIB [Suspect]
     Active Substance: IDELALISIB
     Dosage: 100 MG DAILY
     Route: 048
  5. RITUXIMAB (UNKNOWN) [Suspect]
     Active Substance: RITUXIMAB
     Dosage: GIVEN 2-WEEKLY (CYCLE 1-2) AND THEN 4-WEEKLY (CYCLES 3- 6), EACH CYCLE OF 28 DAYS
     Route: 042
  6. IDELALISIB [Suspect]
     Active Substance: IDELALISIB
     Dosage: 100 MG, BID (GIVEN IN SECOND CYCLE DUE TO ADVERSE EVENT)
     Route: 048
  7. IDELALISIB [Suspect]
     Active Substance: IDELALISIB
     Dosage: 150MG FROM 4TH CYCLE ONWARDS DOSE INCREASED TO 150 MG
     Route: 048
  8. IDELALISIB [Suspect]
     Active Substance: IDELALISIB
     Indication: B-CELL PROLYMPHOCYTIC LEUKAEMIA
     Dosage: 150 MG, BID
     Route: 048

REACTIONS (4)
  - Alanine aminotransferase increased [Recovered/Resolved]
  - Off label use [Unknown]
  - Diarrhoea [Unknown]
  - Intentional product use issue [Unknown]
